FAERS Safety Report 8251729-9 (Version None)
Quarter: 2012Q1

REPORT INFORMATION
  Report Type: 
  Country: None (occurrence: None)
  Receive Date: 20120321
  Receipt Date: 20091204
  Transmission Date: 20120608
  Serious: Yes (Other)
  Sender: FDA-Public Use
  Company Number: PHEH2009US17266

PATIENT
  Age: 87 Year
  Sex: Female

DRUGS (5)
  1. OMEPRAZOLE [Concomitant]
  2. HYDROCHLOROTHIAZIDE W/TRIAMTERENE (HYDROCHLOROTHIAZIDE, TRIAMTERENE) [Concomitant]
  3. ACTONEL PLUS CALCIUM (CALCIUM CARBONATE, RISEDRONATE SODIUM) [Concomitant]
  4. DOXAZOSIN MESYLATE [Concomitant]
  5. VALTURNA [Suspect]
     Dosage: 300/320, UNK

REACTIONS (2)
  - HYPOTENSION [None]
  - FAECAL INCONTINENCE [None]
